FAERS Safety Report 8112724-3 (Version None)
Quarter: 2012Q1

REPORT INFORMATION
  Report Type: 
  Country: None (occurrence: None)
  Receive Date: 20120203
  Receipt Date: 20120130
  Transmission Date: 20120608
  Serious: Yes (Death)
  Sender: FDA-Public Use
  Company Number: US-CELGENEUS-163-21880-12013269

PATIENT
  Sex: Male

DRUGS (12)
  1. VITAMIN B6 [Concomitant]
     Dosage: 250 MILLIGRAM
     Route: 065
  2. COLACE [Concomitant]
     Dosage: 100 MILLIGRAM
     Route: 065
  3. COUMADIN [Concomitant]
     Dosage: 5 MILLIGRAM
     Route: 065
  4. FOSAMAX [Concomitant]
     Dosage: 10 MILLIGRAM
     Route: 065
  5. REVLIMID [Suspect]
     Indication: MULTIPLE MYELOMA
     Dosage: 10 MILLIGRAM
     Route: 048
     Dates: start: 20070323
  6. LASIX [Concomitant]
     Dosage: 20 MILLIGRAM
     Route: 065
  7. MIRALAX [Concomitant]
     Route: 065
  8. ASPIRIN [Concomitant]
     Dosage: 81 MILLIGRAM
     Route: 048
  9. EYE VITAMINS [Concomitant]
     Route: 065
  10. SPIRONOLACTONE [Concomitant]
     Dosage: 25 MILLIGRAM
     Route: 065
  11. CALCIUM [Concomitant]
     Dosage: 500 MILLIGRAM
     Route: 065
  12. SIMVASTATIN [Concomitant]
     Dosage: 40 MILLIGRAM
     Route: 065

REACTIONS (1)
  - DEATH [None]
